FAERS Safety Report 5136698-2 (Version None)
Quarter: 2006Q4

REPORT INFORMATION
  Report Type: 
  Country: None (occurrence: None)
  Receive Date: 20061023
  Receipt Date: 20061012
  Transmission Date: 20070319
  Serious: Yes (Other)
  Sender: FDA-Public Use
  Company Number: 2006100262

PATIENT
  Age: 47 Year
  Sex: Female

DRUGS (5)
  1. LYRICA [Suspect]
     Indication: BACK PAIN
     Dosage: 300 MG (150 MG, 2 IN 1 D),
     Dates: start: 20060614
  2. LYRICA [Suspect]
     Indication: FIBROMYALGIA
     Dosage: 300 MG (150 MG, 2 IN 1 D),
     Dates: start: 20060614
  3. HYDROCHLOROTHIAZIDE [Suspect]
  4. ALL OTHER THERAPEUTIC PRODUCTS (ALL OTHER THERAPEUTIC PRODUCTS) [Concomitant]
  5. CLONAZEPAM [Concomitant]

REACTIONS (14)
  - ANAEMIA [None]
  - ASTHMA [None]
  - CLUMSINESS [None]
  - DEPRESSION [None]
  - GAIT DISTURBANCE [None]
  - HYPONATRAEMIA [None]
  - IMPAIRED DRIVING ABILITY [None]
  - INTENTION TREMOR [None]
  - INTESTINAL OBSTRUCTION [None]
  - PAIN [None]
  - PHARMACEUTICAL PRODUCT COMPLAINT [None]
  - VISION BLURRED [None]
  - VISUAL ACUITY REDUCED [None]
  - WEIGHT INCREASED [None]
